FAERS Safety Report 21149573 (Version 1)
Quarter: 2022Q3

REPORT INFORMATION
  Report Type: Spontaneous
  Country: GB (occurrence: GB)
  Receive Date: 20220729
  Receipt Date: 20220729
  Transmission Date: 20221027
  Serious: Yes (Life-Threatening, Hospitalization, Other)
  Sender: FDA-Public Use
  Company Number: None

PATIENT

DRUGS (7)
  1. ORLISTAT [Interacting]
     Active Substance: ORLISTAT
     Indication: Obesity
     Dosage: 360 MG, QD (STARTED 3 MONTHS BEFORE ADMISSION. THERAPY DURATION STATED AS 2.8 MONTHS)
     Route: 048
     Dates: start: 19990622, end: 19990914
  2. CIMETIDINE [Interacting]
     Active Substance: CIMETIDINE
     Indication: Abdominal pain
     Dosage: 800 MG, QD
     Route: 065
     Dates: start: 19940615
  3. TAGAMET [Suspect]
     Active Substance: CIMETIDINE
     Indication: Duodenal ulcer
     Dosage: 800 MG, QD (STARTED 4 DAYS BEFORE ADMISSION)
     Route: 048
     Dates: start: 19990814
  4. METFORMIN [Interacting]
     Active Substance: METFORMIN HYDROCHLORIDE
     Indication: Diabetes mellitus
     Dosage: 1500 MG, QD (TOTAL DAILY DOSE: 1500 MG)
     Route: 048
     Dates: start: 19950615
  5. SODIUM BICARBONATE [Concomitant]
     Active Substance: SODIUM BICARBONATE
     Indication: Product used for unknown indication
     Dosage: UNK
     Route: 065
  6. CO-AMILOFRUSE [Concomitant]
     Active Substance: AMILORIDE\FUROSEMIDE
     Indication: Oedema peripheral
     Dosage: 2 DF, QD (THERAPY 1: 2 TABLETS IN THE MORNING. 1 TABLET AT MIDDAY. THERAPY 2: 2 TABLETS AT MIDDAY)
     Route: 048
     Dates: start: 19940615
  7. ASPIRIN [Concomitant]
     Active Substance: ASPIRIN
     Indication: Myocardial ischaemia
     Dosage: 75 MG, QD (DOSE: 75 MG)
     Route: 048
     Dates: start: 19940615

REACTIONS (22)
  - Coma scale abnormal [Recovered/Resolved]
  - Asthenia [Recovered/Resolved]
  - Agitation [Recovered/Resolved]
  - Shock [Recovered/Resolved]
  - Abdominal discomfort [Unknown]
  - Acute kidney injury [Recovered/Resolved]
  - Lactic acidosis [Recovered/Resolved]
  - Asthenia [Recovered/Resolved]
  - Dizziness [Recovered/Resolved]
  - Confusional state [Recovered/Resolved]
  - Blood pH decreased [Unknown]
  - Circulatory collapse [Recovered/Resolved]
  - Dysarthria [Recovered/Resolved]
  - Diarrhoea [Recovered/Resolved]
  - Vomiting [Recovered/Resolved]
  - Blood pressure decreased [Unknown]
  - Respiratory tract infection [Not Recovered/Not Resolved]
  - Depressed level of consciousness [Recovered/Resolved]
  - Abdominal pain [Recovered/Resolved]
  - Drug interaction [Recovered/Resolved]
  - Vision blurred [Recovered/Resolved]
  - Drug level increased [Unknown]

NARRATIVE: CASE EVENT DATE: 19990907
